FAERS Safety Report 8504726-X (Version None)
Quarter: 2012Q3

REPORT INFORMATION
  Report Type: 
  Country: None (occurrence: None)
  Receive Date: 20120711
  Receipt Date: 20120626
  Transmission Date: 20120928
  Serious: Yes (Other)
  Sender: FDA-Public Use
  Company Number: CHPA2012US014238

PATIENT
  Age: 63 Year
  Sex: Female

DRUGS (8)
  1. MULTI-VITAMINS [Concomitant]
     Dosage: UNK, UNK
  2. VITAMIN D [Concomitant]
     Dosage: UNK, UNK
  3. GLUCOSE [Concomitant]
     Dosage: UNK, UNK
  4. DRUG THERAPY NOS [Concomitant]
     Dosage: UNK, UNK
  5. ANTIBIOTICS [Concomitant]
     Dosage: UNK, UNK
  6. EXCEDRIN TENSION HEADACHE CAPLETS [Suspect]
     Indication: ARTHRITIS
     Dosage: 1 DF, UNK
     Route: 048
  7. VITAMIN E [Concomitant]
     Dosage: UNK, UNK
  8. ASCORBIC ACID [Concomitant]
     Dosage: UNK, UNK

REACTIONS (3)
  - OFF LABEL USE [None]
  - INCORRECT DOSE ADMINISTERED [None]
  - CELLULITIS [None]
